FAERS Safety Report 4838678-0 (Version None)
Quarter: 2005Q4

REPORT INFORMATION
  Report Type: 
  Country: None (occurrence: None)
  Receive Date: 20051129
  Receipt Date: 20050823
  Transmission Date: 20060501
  Serious: No
  Sender: FDA-Public Use
  Company Number: US-GLAXOSMITHKLINE-A0571422A

PATIENT
  Age: 74 Year
  Sex: Female

DRUGS (5)
  1. COMMIT [Suspect]
     Dates: end: 20050823
  2. ASCORBIC ACID [Concomitant]
  3. VITAMIN B-12 [Concomitant]
  4. VITAMIN B6 [Concomitant]
  5. VITAMIN D [Concomitant]

REACTIONS (4)
  - ACCIDENTAL EXPOSURE [None]
  - ANXIETY [None]
  - FEAR [None]
  - OESOPHAGEAL PAIN [None]
